FAERS Safety Report 16270060 (Version 1)
Quarter: 2019Q2

REPORT INFORMATION
  Report Type: Other
  Country: US (occurrence: US)
  Receive Date: 20190503
  Receipt Date: 20190503
  Transmission Date: 20190711
  Serious: Yes (Other)
  Sender: FDA-Public Use
  Company Number: US-EMD SERONO-9088831

PATIENT
  Age: 66 Year
  Sex: Female

DRUGS (1)
  1. AVELUMAB [Suspect]
     Active Substance: AVELUMAB
     Indication: THYMIC CANCER METASTATIC
     Route: 042
     Dates: start: 2018

REACTIONS (2)
  - Off label use [Unknown]
  - Sjogren^s syndrome [Recovering/Resolving]
